FAERS Safety Report 7989385-7 (Version None)
Quarter: 2011Q4

REPORT INFORMATION
  Report Type: 
  Country: None (occurrence: None)
  Receive Date: 20111219
  Receipt Date: 20111216
  Transmission Date: 20120403
  Serious: Yes (Hospitalization)
  Sender: FDA-Public Use
  Company Number: CA-BAYER-2011-121119

PATIENT
  Age: 35 Year
  Sex: Female
  Weight: 63 kg

DRUGS (1)
  1. MAGNEVIST [Suspect]
     Dosage: 20 ML, ONCE
     Route: 042

REACTIONS (3)
  - THROAT IRRITATION [None]
  - THROAT TIGHTNESS [None]
  - DYSPHAGIA [None]
